FAERS Safety Report 13076788 (Version 1)
Quarter: 2016Q4

REPORT INFORMATION
  Report Type: Spontaneous
  Country: US (occurrence: US)
  Receive Date: 20161230
  Receipt Date: 20161230
  Transmission Date: 20170207
  Serious: Yes (Hospitalization, Other)
  Sender: FDA-Public Use
  Company Number: None

PATIENT
  Age: 57 Year
  Sex: Female
  Weight: 79.65 kg

DRUGS (12)
  1. GLUCOSAMINE [Concomitant]
     Active Substance: GLUCOSAMINE
  2. TURMERIC [Concomitant]
     Active Substance: TURMERIC
  3. MEDTRONIC PACEMAKER [Concomitant]
  4. NEUPRO [Suspect]
     Active Substance: ROTIGOTINE
     Indication: PARKINSON^S DISEASE
     Route: 062
     Dates: start: 20161101, end: 20161229
  5. LIPITOR [Concomitant]
     Active Substance: ATORVASTATIN CALCIUM
  6. ZOLOFT [Concomitant]
     Active Substance: SERTRALINE HYDROCHLORIDE
  7. VITAMIN D [Concomitant]
     Active Substance: CHOLECALCIFEROL
  8. VITAMIN E [Concomitant]
     Active Substance: .ALPHA.-TOCOPHEROL
  9. ALPHA LIPOIC ACID [Concomitant]
     Active Substance: .ALPHA.-LIPOIC ACID
  10. RESVERATROL [Concomitant]
     Active Substance: RESVERATROL
  11. LOSARTAN. [Concomitant]
     Active Substance: LOSARTAN
  12. COQ10 [Concomitant]
     Active Substance: UBIDECARENONE

REACTIONS (3)
  - Therapy change [None]
  - Heart rate irregular [None]
  - Syncope [None]

NARRATIVE: CASE EVENT DATE: 20161123
